FAERS Safety Report 24358809 (Version 1)
Quarter: 2024Q3

REPORT INFORMATION
  Report Type: Report from Study
  Country: GB (occurrence: GB)
  Receive Date: 20240924
  Receipt Date: 20240924
  Transmission Date: 20241016
  Serious: Yes (Hospitalization, Other)
  Sender: BIOCRYST PHARMACEUTICALS
  Company Number: GB-BIOCRYST PHARMACEUTICALS, INC.-2023BCR00149

PATIENT
  Age: 21 Year
  Sex: Female

DRUGS (4)
  1. BEROTRALSTAT [Suspect]
     Active Substance: BEROTRALSTAT
     Indication: Hereditary angioedema with C1 esterase inhibitor deficiency
     Dosage: 150 MG, QD
     Route: 048
     Dates: start: 20210402, end: 2021
  2. CITALOPRAM [Concomitant]
     Active Substance: CITALOPRAM
     Dosage: UNK
  3. TRANEXAMIC ACID [Concomitant]
     Active Substance: TRANEXAMIC ACID
     Dosage: UNK
     Dates: start: 2010
  4. DANAZOL [Concomitant]
     Active Substance: DANAZOL
     Dosage: UNK
     Dates: start: 2019

REACTIONS (3)
  - Hereditary angioedema [Unknown]
  - Electrocardiogram QT prolonged [Recovered/Resolved]
  - Abdominal symptom [Unknown]

NARRATIVE: CASE EVENT DATE: 20210429
